FAERS Safety Report 9468953 (Version 1)
Quarter: 2013Q3

REPORT INFORMATION
  Report Type: Spontaneous
  Country: IT (occurrence: IT)
  Receive Date: 20130821
  Receipt Date: 20130821
  Transmission Date: 20140515
  Serious: Yes (Other)
  Sender: FDA-Public Use
  Company Number: IT-TEVA-427069ISR

PATIENT
  Age: 37 Year
  Sex: Female
  Weight: 80 kg

DRUGS (6)
  1. CARBOPLATINO [Suspect]
     Indication: CERVIX CARCINOMA RECURRENT
     Dosage: 1000 MILLIGRAM DAILY;
     Route: 042
     Dates: start: 20130624, end: 20130806
  2. PACLITAXEL [Concomitant]
     Indication: BLADDER CANCER RECURRENT
     Dates: start: 20130624, end: 20130806
  3. RANITIDINA [Concomitant]
     Dosage: 50 MILLIGRAM DAILY;
     Route: 042
  4. CLORFENAMINA [Concomitant]
     Dosage: 10 MILLIGRAM DAILY;
     Route: 042
  5. DESAMETASONE [Concomitant]
     Dosage: 20 MILLIGRAM DAILY;
     Route: 042
  6. ONDANSETRON [Concomitant]
     Dosage: 8 MILLIGRAM DAILY;
     Route: 042

REACTIONS (2)
  - Dyspnoea [Recovered/Resolved]
  - Feeling hot [Recovered/Resolved]
